FAERS Safety Report 5628937-6 (Version None)
Quarter: 2008Q1

REPORT INFORMATION
  Report Type: 
  Country: None (occurrence: None)
  Receive Date: 20080214
  Receipt Date: 20080205
  Transmission Date: 20080703
  Serious: Yes (Other)
  Sender: FDA-Public Use
  Company Number: 023735

PATIENT
  Sex: Female

DRUGS (3)
  1. MEDROXYPROGESTERONE [Suspect]
     Dosage: ORAL
     Route: 048
     Dates: start: 19950101, end: 19991001
  2. PREMPHASE (PREMARIN;CYCRIN 14/14) [Suspect]
     Dosage: ORAL
     Route: 048
     Dates: start: 19950101, end: 19991001
  3. PROVERA [Suspect]
     Dosage: ORAL
     Route: 048
     Dates: start: 19950101, end: 19991001

REACTIONS (1)
  - BREAST CANCER FEMALE [None]
